FAERS Safety Report 11240571 (Version 1)
Quarter: 2015Q3

REPORT INFORMATION
  Report Type: Spontaneous
  Country: SI (occurrence: SI)
  Receive Date: 20150706
  Receipt Date: 20150706
  Transmission Date: 20151125
  Serious: Yes (Other)
  Sender: FDA-Public Use
  Company Number: SI-FRESENIUS KABI-FK201503145

PATIENT
  Age: 57 Year
  Sex: Male
  Weight: 95 kg

DRUGS (2)
  1. CONCOR COR 2,5 MG [Concomitant]
     Indication: WOLFF-PARKINSON-WHITE SYNDROME
     Route: 048
     Dates: start: 20130801, end: 20150609
  2. PROPOFOL MCT FRESENIUS (NOT SPECIFIED) [Suspect]
     Active Substance: PROPOFOL
     Indication: ATRIAL FIBRILLATION
     Route: 040

REACTIONS (2)
  - Tonic convulsion [Recovered/Resolved]
  - Hyperhidrosis [Recovered/Resolved]
